FAERS Safety Report 9470548 (Version 1)
Quarter: 2013Q3

REPORT INFORMATION
  Report Type: Spontaneous
  Country: BR (occurrence: BR)
  Receive Date: 20130822
  Receipt Date: 20130822
  Transmission Date: 20140515
  Serious: Yes (Other)
  Sender: FDA-Public Use
  Company Number: BR-PFIZER INC-2013242208

PATIENT
  Sex: Female

DRUGS (1)
  1. FRONTAL [Suspect]
     Dosage: UNK

REACTIONS (2)
  - Foot fracture [Unknown]
  - Pain in extremity [Unknown]
